FAERS Safety Report 8464256-0 (Version None)
Quarter: 2012Q2

REPORT INFORMATION
  Report Type: 
  Country: None (occurrence: None)
  Receive Date: 20120625
  Receipt Date: 20120620
  Transmission Date: 20120825
  Serious: Yes (Other)
  Sender: FDA-Public Use
  Company Number: CO-PFIZER INC-2012150756

PATIENT
  Sex: Female

DRUGS (1)
  1. XANAX [Suspect]
     Indication: ANXIETY DISORDER
     Dosage: 0.5 MG, UNK
     Dates: end: 20120615

REACTIONS (1)
  - DEAFNESS [None]
